FAERS Safety Report 9648712 (Version 2)
Quarter: 2014Q1

REPORT INFORMATION
  Report Type: Spontaneous
  Country: US (occurrence: US)
  Receive Date: 20131028
  Receipt Date: 20140127
  Transmission Date: 20141002
  Serious: No
  Sender: FDA-Public Use
  Company Number: US-BAUSCH-BL-2013-004857

PATIENT
  Age: 73 Year
  Sex: Female

DRUGS (3)
  1. PROLENSA (BROMFENAC OPHTHALMIC SOLUTION) 0.07% [Suspect]
     Indication: EYE INFLAMMATION
     Dosage: 1 DROP; ONCE DAILY; LEFT EYE
     Route: 047
     Dates: start: 20130810
  2. PROLENSA (BROMFENAC OPHTHALMIC SOLUTION) 0.07% [Suspect]
     Indication: POSTOPERATIVE CARE
  3. PREDNISOLONE [Concomitant]
     Indication: POSTOPERATIVE CARE
     Dosage: DROP; OPHTHALMIC
     Route: 047

REACTIONS (3)
  - Foreign body sensation in eyes [Not Recovered/Not Resolved]
  - Drug ineffective [Not Recovered/Not Resolved]
  - Vision blurred [Not Recovered/Not Resolved]
